FAERS Safety Report 13487274 (Version 1)
Quarter: 2017Q2

REPORT INFORMATION
  Report Type: Report from Study
  Country: US (occurrence: US)
  Receive Date: 20170426
  Receipt Date: 20170426
  Transmission Date: 20170830
  Serious: Yes (Other)
  Sender: FDA-Public Use
  Company Number: US-BAXALTA-2017BLT003384

PATIENT
  Sex: Female

DRUGS (2)
  1. HYQVIA [Suspect]
     Active Substance: HUMAN IMMUNOGLOBULIN G\HYALURONIDASE RECOMBINANT HUMAN
     Dosage: 10 G, UNK (RAMP UP)
     Route: 065
  2. HYQVIA [Suspect]
     Active Substance: HUMAN IMMUNOGLOBULIN G\HYALURONIDASE RECOMBINANT HUMAN
     Indication: PRIMARY IMMUNODEFICIENCY SYNDROME
     Dosage: 20 G, UNK (RAMP UP)
     Route: 065

REACTIONS (8)
  - Viral upper respiratory tract infection [Unknown]
  - Blood pressure increased [Unknown]
  - Infusion site erythema [Unknown]
  - Somnolence [Unknown]
  - Cough [Unknown]
  - Nasal discharge discolouration [Unknown]
  - Blood pressure abnormal [Unknown]
  - Skin tightness [Unknown]
